FAERS Safety Report 15845683 (Version 2)
Quarter: 2019Q1

REPORT INFORMATION
  Report Type: Spontaneous
  Country: IT (occurrence: IT)
  Receive Date: 20190119
  Receipt Date: 20190307
  Transmission Date: 20190417
  Serious: Yes (Other)
  Sender: FDA-Public Use
  Company Number: IT-AUROBINDO-AUR-APL-2019-000824

PATIENT

DRUGS (1)
  1. AMOXICILLIN. [Suspect]
     Active Substance: AMOXICILLIN
     Indication: DERMATITIS
     Dosage: 1000 MILLIGRAM, DAILY
     Route: 048
     Dates: start: 20180704, end: 20180704

REACTIONS (4)
  - Anaphylactic shock [Recovering/Resolving]
  - Vomiting [Recovering/Resolving]
  - Gastrointestinal pain [Recovering/Resolving]
  - Diarrhoea [Recovering/Resolving]

NARRATIVE: CASE EVENT DATE: 20180704
